FAERS Safety Report 20409793 (Version 1)
Quarter: 2022Q1

REPORT INFORMATION
  Report Type: Spontaneous
  Country: US (occurrence: US)
  Receive Date: 20220201
  Receipt Date: 20220201
  Transmission Date: 20220423
  Serious: No
  Sender: FDA-Public Use
  Company Number: US-SAREPTA THERAPEUTICS INC.-SRP2021-001835

PATIENT
  Age: 1 Year
  Sex: Male
  Weight: 12.245 kg

DRUGS (3)
  1. AMONDYS 45 [Suspect]
     Active Substance: CASIMERSEN
     Indication: Duchenne muscular dystrophy
     Dosage: 400 MILLIGRAM, WEEKLY
     Route: 042
     Dates: start: 20210622, end: 20210819
  2. AMONDYS 45 [Suspect]
     Active Substance: CASIMERSEN
     Dosage: 400 MILLIGRAM, WEEKLY
     Route: 042
     Dates: start: 20210901, end: 20211014
  3. AMONDYS 45 [Suspect]
     Active Substance: CASIMERSEN
     Dosage: 400 MILLIGRAM, WEEKLY
     Route: 042
     Dates: start: 20211104

REACTIONS (2)
  - Intentional dose omission [Unknown]
  - No adverse event [Unknown]

NARRATIVE: CASE EVENT DATE: 20210825
